FAERS Safety Report 11321615 (Version 2)
Quarter: 2015Q3

REPORT INFORMATION
  Report Type: Report from Study
  Country: US (occurrence: US)
  Receive Date: 20150729
  Receipt Date: 20150904
  Transmission Date: 20151125
  Serious: Yes (Hospitalization, Other)
  Sender: FDA-Public Use
  Company Number: US-BAXTER-2015BAX040342

PATIENT
  Age: 10 Year
  Sex: Male
  Weight: 49 kg

DRUGS (11)
  1. TOPOTECAN [Suspect]
     Active Substance: TOPOTECAN\TOPOTECAN HYDROCHLORIDE
     Dosage: CYCLE 3
     Route: 042
     Dates: start: 20150615
  2. CYCLOPHOSPHAMIDE FOR INJECTION, USP [Suspect]
     Active Substance: CYCLOPHOSPHAMIDE
     Indication: EWING^S SARCOMA
     Dosage: DAYS 1-5
     Route: 042
     Dates: start: 20150427, end: 20150619
  3. CRIZOTINIB [Suspect]
     Active Substance: CRIZOTINIB
     Dosage: CYCLE 3
     Route: 065
     Dates: start: 20150626, end: 20150629
  4. TOPOTECAN [Suspect]
     Active Substance: TOPOTECAN\TOPOTECAN HYDROCHLORIDE
     Indication: EWING^S SARCOMA
     Dosage: DAYS 1-5
     Route: 042
     Dates: start: 20150427, end: 20150619
  5. CYCLOPHOSPHAMIDE FOR INJECTION, USP [Suspect]
     Active Substance: CYCLOPHOSPHAMIDE
     Dosage: CYCLE
     Route: 042
     Dates: start: 20150615
  6. CRIZOTINIB [Suspect]
     Active Substance: CRIZOTINIB
     Dosage: CYCLE 3
     Route: 065
     Dates: start: 20150615
  7. NEULASTA [Concomitant]
     Active Substance: PEGFILGRASTIM
     Indication: PRODUCT USED FOR UNKNOWN INDICATION
     Route: 065
     Dates: start: 20150622
  8. CYCLOPHOSPHAMIDE FOR INJECTION, USP [Suspect]
     Active Substance: CYCLOPHOSPHAMIDE
     Dosage: CYCLE 3
     Route: 042
     Dates: start: 20150619
  9. CRIZOTINIB [Suspect]
     Active Substance: CRIZOTINIB
     Indication: EWING^S SARCOMA
     Dosage: DAYS 1-21
     Route: 065
     Dates: start: 20150427, end: 20150629
  10. CRIZOTINIB [Suspect]
     Active Substance: CRIZOTINIB
     Dosage: RESTARTED AT A REDUCED DOSE
     Route: 065
     Dates: start: 20150701, end: 20150705
  11. TOPOTECAN [Suspect]
     Active Substance: TOPOTECAN\TOPOTECAN HYDROCHLORIDE
     Dosage: CYCLE 3
     Route: 042
     Dates: start: 20150619

REACTIONS (3)
  - Anaemia [Recovered/Resolved]
  - Platelet count decreased [Recovered/Resolved]
  - Hypokalaemia [Recovered/Resolved]

NARRATIVE: CASE EVENT DATE: 20150626
